FAERS Safety Report 8582048-9 (Version None)
Quarter: 2012Q3

REPORT INFORMATION
  Report Type: 
  Country: None (occurrence: None)
  Receive Date: 20120809
  Receipt Date: 20120803
  Transmission Date: 20120928
  Serious: Yes (Hospitalization)
  Sender: FDA-Public Use
  Company Number: US-PFIZER INC-2012190685

PATIENT

DRUGS (1)
  1. LATANOPROST [Suspect]
     Dosage: UNK
     Dates: start: 20110620

REACTIONS (1)
  - FALL [None]
